FAERS Safety Report 5141637-4 (Version None)
Quarter: 2006Q4

REPORT INFORMATION
  Report Type: 
  Country: None (occurrence: None)
  Receive Date: 20061101
  Receipt Date: 20060129
  Transmission Date: 20070319
  Serious: Yes (Hospitalization, Disabling, Other)
  Sender: FDA-Public Use
  Company Number: US-AVENTIS-200611216US

PATIENT
  Sex: Male

DRUGS (20)
  1. LANTUS [Suspect]
     Indication: DIABETES MELLITUS NON-INSULIN-DEPENDENT
  2. LANTUS [Suspect]
  3. LANTUS [Suspect]
     Dosage: DOSE: ^60MG MORNING AND EVENING^
  4. OPTICLIK (INSULIN INJECTION PEN) [Suspect]
     Dates: start: 20051221
  5. LEVOTHYROXINE SODIUM [Concomitant]
     Dosage: DOSE: UNK
  6. DIOVANE [Concomitant]
     Dosage: DOSE: UNK
  7. TERAZOSIN HCL [Concomitant]
     Dosage: DOSE: UNK
  8. FUROSEMIDE [Concomitant]
     Dosage: DOSE: UNK
  9. COREG [Concomitant]
     Dosage: DOSE: UNK
  10. AVODART [Concomitant]
     Dosage: DOSE: UNK
  11. COUMADIN [Concomitant]
     Dosage: DOSE: UNK
  12. PENICILLIN [Concomitant]
     Dosage: DOSE: UNK
  13. CLONIDINE [Concomitant]
     Dosage: DOSE: UNK
  14. PREVACID [Concomitant]
     Dosage: DOSE: UNK
  15. IRON PILLS [Concomitant]
     Dosage: DOSE: UNK
  16. NORVASC                            /00972401/ [Concomitant]
     Dosage: DOSE: UNK
  17. ZOLOFT                             /01011401/ [Concomitant]
     Dosage: DOSE: UNK
  18. ATIVAN [Concomitant]
     Dosage: DOSE: UNK
  19. CYCLOBENZAPRINE HCL [Concomitant]
     Dosage: DOSE: UNK
  20. HUMALOG                            /00030501/ [Concomitant]
     Dosage: DOSE: UNK

REACTIONS (8)
  - ARTHRITIS INFECTIVE [None]
  - CARDIAC FAILURE CONGESTIVE [None]
  - INCORRECT DOSE ADMINISTERED [None]
  - LIMB INJURY [None]
  - LOCALISED INFECTION [None]
  - MOBILITY DECREASED [None]
  - NO ADVERSE EFFECT [None]
  - PHARMACEUTICAL PRODUCT COMPLAINT [None]
